FAERS Safety Report 9887367 (Version 1)
Quarter: 2014Q1

REPORT INFORMATION
  Report Type: Spontaneous
  Country: BR (occurrence: BR)
  Receive Date: 20140211
  Receipt Date: 20140211
  Transmission Date: 20141002
  Serious: Yes (Other)
  Sender: FDA-Public Use
  Company Number: BR-RANBAXY-2014R5-77835

PATIENT
  Age: 73 Year
  Sex: Male
  Weight: 57 kg

DRUGS (3)
  1. CEFUROXIME AXETIL [Suspect]
     Indication: RHINITIS ALLERGIC
     Dosage: 500 MG, BID
     Route: 048
     Dates: start: 20140127, end: 20140127
  2. OMEPRAZOLE [Concomitant]
     Indication: GASTRITIS
     Dosage: 1 DF, PRN
     Route: 065
  3. RIVOTRIL [Concomitant]
     Indication: PRODUCT USED FOR UNKNOWN INDICATION
     Dosage: 5 DROPS, BID
     Route: 065

REACTIONS (5)
  - Nasal congestion [Recovering/Resolving]
  - Laryngeal obstruction [Recovering/Resolving]
  - Rhinorrhoea [Recovering/Resolving]
  - Gastritis [Recovering/Resolving]
  - Aphonia [Recovering/Resolving]
